FAERS Safety Report 10888674 (Version 1)
Quarter: 2015Q1

REPORT INFORMATION
  Report Type: Report from Study
  Country: JP (occurrence: JP)
  Receive Date: 20150305
  Receipt Date: 20150305
  Transmission Date: 20150721
  Serious: Yes (Hospitalization)
  Sender: FDA-Public Use
  Company Number: JP-GLAXOSMITHKLINE-B0963143A

PATIENT
  Age: 70 Year
  Sex: Male

DRUGS (11)
  1. AMLODIPINE [Concomitant]
     Active Substance: AMLODIPINE BESYLATE
     Route: 048
     Dates: end: 20130525
  2. NEORAL [Concomitant]
     Active Substance: CYCLOSPORINE
     Indication: MICROSCOPIC POLYANGIITIS
     Dosage: 50 MG, BID
     Route: 048
     Dates: start: 2003
  3. PREDNISOLONE. [Concomitant]
     Active Substance: PREDNISOLONE
     Indication: MICROSCOPIC POLYANGIITIS
     Route: 048
     Dates: start: 2003
  4. ATOVAQUONE. [Suspect]
     Active Substance: ATOVAQUONE
     Indication: ANTIFUNGAL PROPHYLAXIS
     Route: 048
     Dates: start: 20130329, end: 20130525
  5. URSO [Concomitant]
     Active Substance: URSODIOL
     Route: 048
  6. NOVOLIN R [Concomitant]
     Active Substance: INSULIN HUMAN
     Route: 051
  7. PRORNER [Suspect]
     Active Substance: BERAPROST SODIUM
     Route: 048
     Dates: end: 20130525
  8. DIOVAN [Concomitant]
     Active Substance: VALSARTAN
     Route: 048
  9. TAKEPRON [Concomitant]
     Active Substance: LANSOPRAZOLE
     Indication: PROPHYLAXIS AGAINST GASTROINTESTINAL ULCER
     Route: 048
  10. BUFFERIN [Concomitant]
     Active Substance: ASPIRIN
     Route: 048
  11. FOSAMAC 35MG [Concomitant]
     Indication: OSTEOPOROSIS PROPHYLAXIS
     Route: 048

REACTIONS (8)
  - Blood bilirubin increased [None]
  - Hepatic cyst [None]
  - Hepatic function abnormal [Recovered/Resolved]
  - Blood alkaline phosphatase increased [None]
  - Gamma-glutamyltransferase increased [None]
  - Alanine aminotransferase increased [None]
  - Aspartate aminotransferase increased [None]
  - Blood lactate dehydrogenase increased [None]

NARRATIVE: CASE EVENT DATE: 20130523
